FAERS Safety Report 15851251 (Version 1)
Quarter: 2019Q1

REPORT INFORMATION
  Report Type: Spontaneous
  Country: CN (occurrence: CN)
  Receive Date: 20190122
  Receipt Date: 20190122
  Transmission Date: 20190417
  Serious: Yes (Hospitalization, Other)
  Sender: FDA-Public Use
  Company Number: CN-ROCHE-2246315

PATIENT
  Age: 45 Year
  Sex: Male

DRUGS (33)
  1. PREDNISONE. [Concomitant]
     Active Substance: PREDNISONE
     Indication: HAEMOLYTIC ANAEMIA
  2. MABTHERA [Suspect]
     Active Substance: RITUXIMAB
     Indication: CHRONIC HEPATITIS B
  3. PREDNISONE. [Concomitant]
     Active Substance: PREDNISONE
     Indication: CHRONIC HEPATITIS B
  4. ENTECAVIR. [Concomitant]
     Active Substance: ENTECAVIR
     Indication: CHRONIC HEPATITIS B
  5. WASHED RED BLOOD CELLS [Concomitant]
     Indication: HAEMOLYTIC ANAEMIA
  6. VINCRISTINE [Concomitant]
     Active Substance: VINCRISTINE
     Indication: HAEMOLYTIC ANAEMIA
  7. PREDNISONE. [Concomitant]
     Active Substance: PREDNISONE
     Indication: NON-HODGKIN^S LYMPHOMA
  8. FOLIC ACID. [Concomitant]
     Active Substance: FOLIC ACID
     Route: 048
  9. VITAMIN B12 [Concomitant]
     Active Substance: CYANOCOBALAMIN
     Indication: CHRONIC HEPATITIS B
  10. MABTHERA [Suspect]
     Active Substance: RITUXIMAB
     Indication: NON-HODGKIN^S LYMPHOMA
     Route: 065
  11. CYCLOPHOSPHAMIDE. [Concomitant]
     Active Substance: CYCLOPHOSPHAMIDE
     Indication: NON-HODGKIN^S LYMPHOMA
  12. DOXORUBICIN [Concomitant]
     Active Substance: DOXORUBICIN
     Indication: DIFFUSE LARGE B-CELL LYMPHOMA
  13. VINCRISTINE [Concomitant]
     Active Substance: VINCRISTINE
     Indication: DIFFUSE LARGE B-CELL LYMPHOMA
  14. WASHED RED BLOOD CELLS [Concomitant]
     Indication: NON-HODGKIN^S LYMPHOMA
     Route: 042
  15. WASHED RED BLOOD CELLS [Concomitant]
     Indication: DIFFUSE LARGE B-CELL LYMPHOMA
  16. MABTHERA [Suspect]
     Active Substance: RITUXIMAB
     Indication: DIFFUSE LARGE B-CELL LYMPHOMA
  17. PREDNISONE. [Concomitant]
     Active Substance: PREDNISONE
     Indication: DIFFUSE LARGE B-CELL LYMPHOMA
  18. ENTECAVIR. [Concomitant]
     Active Substance: ENTECAVIR
     Indication: NON-HODGKIN^S LYMPHOMA
  19. ENTECAVIR. [Concomitant]
     Active Substance: ENTECAVIR
     Indication: DIFFUSE LARGE B-CELL LYMPHOMA
  20. CYCLOPHOSPHAMIDE. [Concomitant]
     Active Substance: CYCLOPHOSPHAMIDE
     Indication: CHRONIC HEPATITIS B
  21. DOXORUBICIN [Concomitant]
     Active Substance: DOXORUBICIN
     Indication: CHRONIC HEPATITIS B
  22. ENTECAVIR. [Concomitant]
     Active Substance: ENTECAVIR
     Indication: HAEMOLYTIC ANAEMIA
  23. VITAMIN B12 [Concomitant]
     Active Substance: CYANOCOBALAMIN
     Indication: DIFFUSE LARGE B-CELL LYMPHOMA
  24. VITAMIN B12 [Concomitant]
     Active Substance: CYANOCOBALAMIN
     Indication: HAEMOLYTIC ANAEMIA
  25. MABTHERA [Suspect]
     Active Substance: RITUXIMAB
     Indication: HAEMOLYTIC ANAEMIA
  26. DOXORUBICIN [Concomitant]
     Active Substance: DOXORUBICIN
     Indication: HAEMOLYTIC ANAEMIA
  27. WASHED RED BLOOD CELLS [Concomitant]
     Indication: CHRONIC HEPATITIS B
  28. VITAMIN B12 [Concomitant]
     Active Substance: CYANOCOBALAMIN
     Indication: NON-HODGKIN^S LYMPHOMA
     Route: 048
  29. CYCLOPHOSPHAMIDE. [Concomitant]
     Active Substance: CYCLOPHOSPHAMIDE
     Indication: NON-HODGKIN^S LYMPHOMA
  30. CYCLOPHOSPHAMIDE. [Concomitant]
     Active Substance: CYCLOPHOSPHAMIDE
     Indication: HAEMOLYTIC ANAEMIA
  31. DOXORUBICIN [Concomitant]
     Active Substance: DOXORUBICIN
     Indication: NON-HODGKIN^S LYMPHOMA
  32. VINCRISTINE [Concomitant]
     Active Substance: VINCRISTINE
     Indication: NON-HODGKIN^S LYMPHOMA
  33. VINCRISTINE [Concomitant]
     Active Substance: VINCRISTINE
     Indication: CHRONIC HEPATITIS B

REACTIONS (3)
  - Interstitial lung disease [Recovering/Resolving]
  - Haemolytic anaemia [Recovered/Resolved with Sequelae]
  - Oedema peripheral [Unknown]
